FAERS Safety Report 16892747 (Version 1)
Quarter: 2019Q4

REPORT INFORMATION
  Report Type: Spontaneous
  Country: US (occurrence: US)
  Receive Date: 20191007
  Receipt Date: 20191007
  Transmission Date: 20200122
  Serious: No
  Sender: FDA-Public Use
  Company Number: US-VIFOR (INTERNATIONAL) INC.-VIT-2019-08832

PATIENT
  Age: 66 Year
  Sex: Male

DRUGS (9)
  1. VELTASSA [Suspect]
     Active Substance: PATIROMER
     Indication: HYPERKALAEMIA
     Dates: start: 20161103
  2. CARVEDILOL. [Concomitant]
     Active Substance: CARVEDILOL
  3. FAMOTIDINE. [Concomitant]
     Active Substance: FAMOTIDINE
  4. PARICALCITOL. [Concomitant]
     Active Substance: PARICALCITOL
  5. HUMALOG [Concomitant]
     Active Substance: INSULIN LISPRO
  6. TRADJENTA [Concomitant]
     Active Substance: LINAGLIPTIN
  7. TAMSULOSIN [Concomitant]
     Active Substance: TAMSULOSIN
  8. AMLODIPINE [Concomitant]
     Active Substance: AMLODIPINE BESYLATE
  9. LOVAZA [Concomitant]
     Active Substance: OMEGA-3-ACID ETHYL ESTERS

REACTIONS (1)
  - Constipation [Not Recovered/Not Resolved]

NARRATIVE: CASE EVENT DATE: 20190906
